FAERS Safety Report 6419316-2 (Version None)
Quarter: 2009Q4

REPORT INFORMATION
  Report Type: 
  Country: None (occurrence: None)
  Receive Date: 20091029
  Receipt Date: 20091026
  Transmission Date: 20100525
  Serious: Yes (Hospitalization, Other)
  Sender: FDA-Public Use
  Company Number: DE-ROXANE LABORATORIES, INC.-2009-RO-01098RO

PATIENT
  Age: 45 Year
  Sex: Male

DRUGS (5)
  1. LITHIUM CARBONATE [Suspect]
     Indication: BIPOLAR DISORDER
     Dosage: 1072 MG
  2. CLARITHROMYCIN [Suspect]
     Indication: PNEUMONIA
  3. CLARITHROMYCIN [Suspect]
     Indication: CHLAMYDIAL INFECTION
  4. AMPICILLIN AND SULBACTAM [Suspect]
     Indication: PNEUMONIA
  5. AMPICILLIN AND SULBACTAM [Suspect]
     Indication: CHLAMYDIAL INFECTION

REACTIONS (7)
  - CEREBELLAR ATAXIA [None]
  - CEREBELLAR ATROPHY [None]
  - CHLAMYDIAL INFECTION [None]
  - CSF PROTEIN INCREASED [None]
  - DYSARTHRIA [None]
  - DYSPHAGIA [None]
  - PNEUMONIA [None]
